FAERS Safety Report 12796522 (Version 1)
Quarter: 2016Q3

REPORT INFORMATION
  Report Type: Spontaneous
  Country: US (occurrence: US)
  Receive Date: 20160929
  Receipt Date: 20160929
  Transmission Date: 20161109
  Serious: Yes (Other)
  Sender: FDA-Public Use
  Company Number: US-BAYER-2016-185756

PATIENT
  Sex: Female

DRUGS (2)
  1. MIRENA [Suspect]
     Active Substance: LEVONORGESTREL
     Indication: CONTRACEPTION
     Dosage: 20 MCG/24HR, CONT
     Route: 015
     Dates: end: 20160504
  2. SKYLA [Suspect]
     Active Substance: LEVONORGESTREL
     Indication: CONTRACEPTION
     Dosage: 14 MCG/24HR, CONT
     Route: 015
     Dates: start: 20160504

REACTIONS (11)
  - Uterine perforation [None]
  - Depression [Not Recovered/Not Resolved]
  - Abasia [None]
  - Uterine cervical pain [None]
  - Uterine spasm [None]
  - Crying [None]
  - Genital haemorrhage [Not Recovered/Not Resolved]
  - Mental disorder [Not Recovered/Not Resolved]
  - Uterine spasm [Not Recovered/Not Resolved]
  - Uterine cervical pain [Not Recovered/Not Resolved]
  - Feeling abnormal [Not Recovered/Not Resolved]

NARRATIVE: CASE EVENT DATE: 2016
